FAERS Safety Report 20513934 (Version 1)
Quarter: 2022Q1

REPORT INFORMATION
  Report Type: Spontaneous
  Country: US (occurrence: US)
  Receive Date: 20220224
  Receipt Date: 20220224
  Transmission Date: 20220423
  Serious: No
  Sender: FDA-Public Use
  Company Number: US-AMNEAL PHARMACEUTICALS-2021-AMRX-05004

PATIENT
  Sex: Female
  Weight: 68.04 kg

DRUGS (14)
  1. RYTARY [Suspect]
     Active Substance: CARBIDOPA\LEVODOPA
     Indication: Product used for unknown indication
     Dosage: UNK
     Route: 065
  2. GOCOVRI [Suspect]
     Active Substance: AMANTADINE
     Indication: Dyskinesia
     Dosage: 137MG 1 CAPSULES, 1X/DAY
     Route: 048
     Dates: start: 20210922, end: 20210928
  3. GOCOVRI [Suspect]
     Active Substance: AMANTADINE
     Dosage: 274MG, 1 CAPSULES, BEDTIME
     Route: 048
     Dates: start: 20210929, end: 20210929
  4. GOCOVRI [Suspect]
     Active Substance: AMANTADINE
     Dosage: 137 MG, 1 CAPSULES, BEDTIME
     Route: 048
     Dates: start: 20210930, end: 20211009
  5. GOCOVRI [Suspect]
     Active Substance: AMANTADINE
     Dosage: 274MG, 1 CAPSULES, BEDTIME
     Route: 048
     Dates: start: 20211010, end: 202110
  6. GOCOVRI [Suspect]
     Active Substance: AMANTADINE
     Dosage: DOSE DECREASED
     Route: 048
     Dates: start: 20211010
  7. GOCOVRI [Suspect]
     Active Substance: AMANTADINE
     Dosage: 137MG, 1 CAPSULES, BEDTIME
     Route: 048
     Dates: start: 20211104, end: 20211110
  8. GOCOVRI [Suspect]
     Active Substance: AMANTADINE
     Dosage: 274MG, 1 CAPSULES, BEDTIME
     Route: 048
     Dates: start: 20211111, end: 202111
  9. GOCOVRI [Suspect]
     Active Substance: AMANTADINE
     Dosage: TITRATING DOWN
     Route: 048
     Dates: start: 202111, end: 2021
  10. GABAPENTIN [Concomitant]
     Active Substance: GABAPENTIN
     Indication: Product used for unknown indication
     Route: 065
  11. ATORVASTATIN [Concomitant]
     Active Substance: ATORVASTATIN
     Indication: Product used for unknown indication
     Route: 065
  12. ALPRAZOLAM [Concomitant]
     Active Substance: ALPRAZOLAM
     Indication: Product used for unknown indication
     Route: 065
  13. SYNTHROID [Concomitant]
     Active Substance: LEVOTHYROXINE SODIUM
     Indication: Product used for unknown indication
     Route: 065
  14. FLUTICASONE PROPIONATE [Concomitant]
     Active Substance: FLUTICASONE PROPIONATE
     Indication: Product used for unknown indication
     Route: 065

REACTIONS (9)
  - Feeling abnormal [Recovered/Resolved]
  - Emotional distress [Recovered/Resolved]
  - Lethargy [Not Recovered/Not Resolved]
  - Mental impairment [Recovered/Resolved]
  - Fatigue [Not Recovered/Not Resolved]
  - Asthenia [Not Recovered/Not Resolved]
  - Dizziness [Recovered/Resolved]
  - Dyskinesia [Not Recovered/Not Resolved]
  - Hypotension [Not Recovered/Not Resolved]

NARRATIVE: CASE EVENT DATE: 20210101
